FAERS Safety Report 11064594 (Version 1)
Quarter: 2015Q2

REPORT INFORMATION
  Report Type: Report from Study
  Country: DK (occurrence: DK)
  Receive Date: 20150424
  Receipt Date: 20150424
  Transmission Date: 20150821
  Serious: Yes (Other)
  Sender: FDA-Public Use
  Company Number: DK-OTSUKA-US-2015-11556

PATIENT

DRUGS (8)
  1. BLINDED OPC-41061 [Suspect]
     Active Substance: TOLVAPTAN
     Indication: CONGENITAL CYSTIC KIDNEY DISEASE
     Dosage: 0 MG 1+1
     Route: 048
     Dates: start: 20150221, end: 20150227
  2. SIMVASTATIN. [Concomitant]
     Active Substance: SIMVASTATIN
     Indication: HYPERCHOLESTEROLAEMIA
     Dosage: 40 MG MILLIGRAM(S), QD
     Route: 048
  3. BLINDED OPC-41061 [Suspect]
     Active Substance: TOLVAPTAN
     Dosage: 30 MG MILLIGRAM(S), 3+1
     Route: 048
     Dates: start: 20150228, end: 20150402
  4. LOSARTAN [Concomitant]
     Active Substance: LOSARTAN
     Indication: HYPERTENSION
     Dosage: 100 MG MILLIGRAM(S), QD
     Route: 048
     Dates: start: 20150123
  5. METOPROLOL [Concomitant]
     Active Substance: METOPROLOL
     Indication: HYPERTENSION
     Dosage: 50 MG MILLIGRAM(S), QD
     Route: 048
     Dates: start: 20150123
  6. PLACEBO [Suspect]
     Active Substance: UNSPECIFIED INGREDIENT
     Indication: CONGENITAL CYSTIC KIDNEY DISEASE
     Dosage: 0 MG 1+1
     Route: 048
     Dates: start: 20150221, end: 20150227
  7. AMLODIPIN [Concomitant]
     Active Substance: AMLODIPINE BESYLATE
     Indication: HYPERTENSION
     Dosage: 10 MG MILLIGRAM(S), QD
     Route: 048
     Dates: start: 20150201, end: 20150407
  8. PLACEBO [Suspect]
     Active Substance: UNSPECIFIED INGREDIENT
     Dosage: 30 MG MILLIGRAM(S), 3+1
     Route: 048
     Dates: start: 20150228, end: 20150402

REACTIONS (1)
  - Dyspnoea [Not Recovered/Not Resolved]
